FAERS Safety Report 18126657 (Version 6)
Quarter: 2020Q4

REPORT INFORMATION
  Report Type: Report from Study
  Country: US (occurrence: US)
  Receive Date: 20200809
  Receipt Date: 20201217
  Transmission Date: 20210113
  Serious: Yes (Other)
  Sender: FDA-Public Use
  Company Number: US-B.I. PHARMACEUTICALS,INC./RIDGEFIELD-2019-MR-105950

PATIENT
  Age: 56 Year
  Sex: Male

DRUGS (8)
  1. OFEV [Suspect]
     Active Substance: NINTEDANIB
  2. OFEV [Suspect]
     Active Substance: NINTEDANIB
  3. OFEV [Suspect]
     Active Substance: NINTEDANIB
  4. OFEV [Suspect]
     Active Substance: NINTEDANIB
  5. OFEV [Suspect]
     Active Substance: NINTEDANIB
     Indication: IDIOPATHIC PULMONARY FIBROSIS
     Dosage: OFEV DOSE 300MG DAILY
     Route: 048
     Dates: start: 20190925
  6. OFEV [Suspect]
     Active Substance: NINTEDANIB
  7. OFEV [Suspect]
     Active Substance: NINTEDANIB
  8. OFEV [Suspect]
     Active Substance: NINTEDANIB

REACTIONS (24)
  - Weight decreased [Not Recovered/Not Resolved]
  - Anxiety [Not Recovered/Not Resolved]
  - Dry mouth [Unknown]
  - Vision blurred [Unknown]
  - Faeces soft [Unknown]
  - Wheezing [Unknown]
  - Respiratory tract congestion [Unknown]
  - Anal incontinence [Unknown]
  - Dysphonia [Not Recovered/Not Resolved]
  - Hip arthroplasty [Unknown]
  - Diarrhoea [Unknown]
  - Dizziness [Not Recovered/Not Resolved]
  - Nephrolithiasis [Not Recovered/Not Resolved]
  - Asthenopia [Unknown]
  - Influenza [Unknown]
  - Dysgeusia [Not Recovered/Not Resolved]
  - Fatigue [Unknown]
  - Dyspnoea [Unknown]
  - Nausea [Unknown]
  - Stent placement [Recovered/Resolved]
  - Taste disorder [Unknown]
  - Arthralgia [Recovered/Resolved]
  - Cough [Unknown]
  - Decreased appetite [Unknown]

NARRATIVE: CASE EVENT DATE: 20190926
